FAERS Safety Report 18049156 (Version 1)
Quarter: 2020Q3

REPORT INFORMATION
  Report Type: Spontaneous
  Country: US (occurrence: US)
  Receive Date: 20200721
  Receipt Date: 20200721
  Transmission Date: 20201103
  Serious: Yes (Other)
  Sender: FDA-Public Use
  Company Number: US-PFIZER INC-2020277190

PATIENT
  Age: 56 Year
  Sex: Female
  Weight: 89.81 kg

DRUGS (1)
  1. OXALIPLATIN. [Suspect]
     Active Substance: OXALIPLATIN
     Dosage: UNK
     Route: 042

REACTIONS (3)
  - Paraesthesia [Unknown]
  - Dyspnoea [Recovering/Resolving]
  - Gait inability [Unknown]
